FAERS Safety Report 4543919-3 (Version None)
Quarter: 2004Q4

REPORT INFORMATION
  Report Type: 
  Country: None (occurrence: None)
  Receive Date: 20041229
  Receipt Date: 20041229
  Transmission Date: 20050328
  Serious: Yes (Hospitalization)
  Sender: FDA-Public Use
  Company Number: None

PATIENT
  Age: 84 Year
  Sex: Female

DRUGS (19)
  1. BEXTRA [Suspect]
     Indication: ARTHRITIS
     Dosage: 20 MG DAILY
  2. ACTOS [Suspect]
     Dosage: 45 MG DAILY
  3. VERELAN [Concomitant]
  4. MICRONASE [Concomitant]
  5. CELEXA [Concomitant]
  6. AXID [Concomitant]
  7. ALLOPURINOL [Concomitant]
  8. DIGOXIN [Concomitant]
  9. LASIX [Concomitant]
  10. ZAROXOLYN [Concomitant]
  11. DIOVAN [Concomitant]
  12. M.V.I. [Concomitant]
  13. NIASPAN [Concomitant]
  14. NITROGLYCERIN [Concomitant]
  15. ALLEGRA [Concomitant]
  16. NITRO-DUR PATCHES [Concomitant]
  17. PRAVACHOL [Concomitant]
  18. ECOTRIN [Concomitant]
  19. PRANDIN [Concomitant]

REACTIONS (1)
  - CARDIOMYOPATHY [None]
